FAERS Safety Report 5673343-1 (Version None)
Quarter: 2008Q2

REPORT INFORMATION
  Report Type: 
  Country: None (occurrence: None)
  Receive Date: 20080219
  Receipt Date: 20071106
  Transmission Date: 20081010
  Serious: No
  Sender: FDA-Public Use
  Company Number: TPA2007A02302

PATIENT
  Age: 59 Year
  Sex: Female

DRUGS (6)
  1. ROZEREM [Suspect]
     Dosage: PER ORAL
     Route: 048
  2. ESTROGENS (ESTROGENS) [Concomitant]
  3. LIPITOR [Concomitant]
  4. LEVOXYL [Concomitant]
  5. ASPIRIN [Concomitant]
  6. MULTI-VITAMINS [Concomitant]

REACTIONS (1)
  - DRUG INEFFECTIVE [None]
